FAERS Safety Report 4784932-0 (Version None)
Quarter: 2005Q3

REPORT INFORMATION
  Report Type: 
  Country: None (occurrence: None)
  Receive Date: 20050928
  Receipt Date: 20050914
  Transmission Date: 20060218
  Serious: Yes (Death, Other)
  Sender: FDA-Public Use
  Company Number: US_0506118439

PATIENT
  Age: 17 Year
  Sex: Female

DRUGS (25)
  1. ZYPREXA [Suspect]
     Indication: ANXIETY
     Route: 048
  2. HUMULIN N [Concomitant]
  3. HUMULIN R [Concomitant]
  4. ABILIFY [Suspect]
  5. SEROQUEL [Concomitant]
  6. FLUVOXAMINE [Concomitant]
  7. METFORMIN [Concomitant]
  8. DEPAKOTE [Concomitant]
  9. GEMFIBROZIL [Concomitant]
  10. IMIPRAMINE [Concomitant]
  11. LEVOXYL [Concomitant]
  12. RANITIDINE [Concomitant]
  13. ACETAMINOPHEN [Concomitant]
  14. ACTICIN (PERMETHRIN) [Concomitant]
  15. METRONIDAZOLE [Concomitant]
  16. METADATE CD [Concomitant]
  17. OMEPRAZOLE [Concomitant]
  18. HYDROXYZINE [Concomitant]
  19. LEVOTHYROXINE [Concomitant]
  20. SYNTHROID [Concomitant]
  21. GLUCOPHAGE [Concomitant]
  22. LUVOX [Concomitant]
  23. DDAVP (DESMOPRESSIN ACETATE) [Concomitant]
  24. ALBUTEROL [Concomitant]
  25. OXYBUTYNIN [Concomitant]

REACTIONS (9)
  - ABNORMAL BEHAVIOUR [None]
  - BLOOD TRIGLYCERIDES INCREASED [None]
  - CHEST WALL PAIN [None]
  - DIABETES MELLITUS NON-INSULIN-DEPENDENT [None]
  - GLYCOSYLATED HAEMOGLOBIN INCREASED [None]
  - HIGH DENSITY LIPOPROTEIN DECREASED [None]
  - LOW DENSITY LIPOPROTEIN INCREASED [None]
  - OVERDOSE [None]
  - WEIGHT INCREASED [None]
